FAERS Safety Report 5724796-1 (Version None)
Quarter: 2008Q2

REPORT INFORMATION
  Report Type: 
  Country: None (occurrence: None)
  Receive Date: 20080423
  Receipt Date: 20080410
  Transmission Date: 20081010
  Serious: Yes (Other)
  Sender: FDA-Public Use
  Company Number: THYM-1000666

PATIENT
  Age: 17 Year
  Sex: Male

DRUGS (6)
  1. THYMOGLOBULINE (ANTI-THYMOCYTE GLOBULIN (RABBIT)) POWDER  FOR SOLUTION [Suspect]
     Indication: APLASTIC ANAEMIA
     Dates: start: 20080129, end: 20080204
  2. CYCLOSPORINE [Concomitant]
  3. MAGNESIUM (MAGNESIUM OXIDE) [Concomitant]
  4. OMEPRAZOLE [Concomitant]
  5. CIPROFLOXACIN [Concomitant]
  6. INTRACONAZOLE (ITRACONAZOLE) [Concomitant]

REACTIONS (1)
  - PETIT MAL EPILEPSY [None]
